FAERS Safety Report 17205778 (Version 1)
Quarter: 2019Q4

REPORT INFORMATION
  Report Type: Spontaneous
  Country: US (occurrence: US)
  Receive Date: 20191227
  Receipt Date: 20191227
  Transmission Date: 20200122
  Serious: No
  Sender: FDA-Public Use
  Company Number: US-TEVA-2019-US-1156289

PATIENT

DRUGS (1)
  1. BUPRENORPHINE TEVA [Suspect]
     Active Substance: BUPRENORPHINE
     Indication: PAIN
     Dosage: 20 MICROGRAM IN 1 HOUR
     Route: 065

REACTIONS (10)
  - Heart rate increased [Unknown]
  - Pain [Unknown]
  - Disturbance in attention [Unknown]
  - Hyperhidrosis [Unknown]
  - Chills [Unknown]
  - Agitation [Unknown]
  - Product adhesion issue [Unknown]
  - Product substitution issue [Unknown]
  - Tremor [Unknown]
  - Diarrhoea [Unknown]
